FAERS Safety Report 9180037 (Version 1)
Quarter: 2012Q4

REPORT INFORMATION
  Report Type: 
  Country: US (occurrence: US)
  Receive Date: 20121029
  Receipt Date: 20121029
  Transmission Date: 20130627
  Serious: No
  Sender: FDA-Public Use
  Company Number: US-AMGEN-USASP2012053817

PATIENT
  Age: 69 Year
  Sex: Female
  Weight: 78.01 kg

DRUGS (22)
  1. ENBREL [Suspect]
     Indication: PRODUCT USED FOR UNKNOWN INDICATION
     Dosage: 50 mg, qwk
     Route: 058
  2. XANAX [Concomitant]
     Dosage: 0.5 mg, UNK
  3. FUROSEMIDE [Concomitant]
     Dosage: 80 mg, UNK
  4. VICODIN [Concomitant]
     Dosage: 5-500 mg, UNK
  5. LISINOPRIL [Concomitant]
     Dosage: 100 mg, UNK
  6. METHOCARBAMOL [Concomitant]
     Dosage: 750 mg, UNK
  7. ADVAIR [Concomitant]
     Dosage: 100/50 UNK, UNK
  8. LEVOTHYROXIN [Concomitant]
     Dosage: 88 mcg, UNK
  9. PRILOSEC                           /00661201/ [Concomitant]
     Dosage: 10 mg, UNK
  10. THEOPHYLLINE ER [Concomitant]
     Dosage: 100 mg, UNK
  11. SULINDAC [Concomitant]
     Dosage: 150 mg, UNK
  12. DALIRESP [Concomitant]
     Dosage: 500 ug, UNK
  13. SPIRIVA HANDIHALER [Concomitant]
  14. POTASSIUM [Concomitant]
     Dosage: 75 mg, UNK
  15. XOPENEX HFA [Concomitant]
  16. QUALAQUIN [Concomitant]
     Dosage: 324 mg, UNK
  17. BENICAR HCT [Concomitant]
     Dosage: 20/12.5, unk
  18. ALLERGY                            /00000402/ [Concomitant]
     Dosage: 25 mg, UNK
  19. CALCIUM + VIT D [Concomitant]
  20. ASPIRIN [Concomitant]
     Dosage: 81 mg, UNK
  21. FOLIC ACID [Concomitant]
     Dosage: 20 mg, UNK
  22. METHOTREXATE [Concomitant]
     Dosage: 1 g, UNK

REACTIONS (3)
  - Respiratory tract congestion [Unknown]
  - Blood potassium increased [Unknown]
  - Pain [Unknown]
